APPROVED DRUG PRODUCT: DIGOXIN
Active Ingredient: DIGOXIN
Strength: 0.125MG
Dosage Form/Route: TABLET;ORAL
Application: A040282 | Product #001 | TE Code: AB
Applicant: RISING PHARMA HOLDING INC
Approved: Dec 23, 1999 | RLD: No | RS: No | Type: RX